FAERS Safety Report 6711200-X (Version None)
Quarter: 2010Q2

REPORT INFORMATION
  Report Type: 
  Country: None (occurrence: None)
  Receive Date: 20100505
  Receipt Date: 20100430
  Transmission Date: 20101027
  Serious: Yes (Other)
  Sender: FDA-Public Use
  Company Number: US-ELI_LILLY_AND_COMPANY-US201005000320

PATIENT
  Age: 75 Year
  Sex: Female

DRUGS (5)
  1. HUMALOG [Suspect]
     Indication: DIABETES MELLITUS
     Dosage: 18 U, 3/D
  2. HUMALOG [Suspect]
     Dosage: UNK, AS NEEDED
  3. HUMALOG [Suspect]
     Dosage: 18 U, 3/D
     Dates: start: 20000101
  4. HUMALOG [Suspect]
     Dosage: UNK, AS NEEDED
     Dates: start: 20000101
  5. LANTUS [Concomitant]

REACTIONS (4)
  - ALLERGY TO ANIMAL [None]
  - ARTHRITIS [None]
  - BREAST CANCER [None]
  - GAIT DISTURBANCE [None]
